FAERS Safety Report 8962494 (Version 7)
Quarter: 2013Q4

REPORT INFORMATION
  Report Type: Spontaneous
  Country: BR (occurrence: BR)
  Receive Date: 20121213
  Receipt Date: 20131024
  Transmission Date: 20140711
  Serious: Yes (Other)
  Sender: FDA-Public Use
  Company Number: BR-ROCHE-1168209

PATIENT
  Sex: Male
  Weight: 65 kg

DRUGS (3)
  1. BACTRIM [Suspect]
     Indication: URINARY TRACT INFECTION
     Dosage: 800/160MG
     Route: 048
     Dates: start: 20121209, end: 20121215
  2. RIVOTRIL [Suspect]
     Indication: PANIC DISORDER
     Dosage: 14 DROPS PER DAY
     Route: 048
     Dates: start: 2009
  3. RIVOTRIL [Suspect]
     Indication: SLEEP DISORDER

REACTIONS (4)
  - Hepatic cirrhosis [Not Recovered/Not Resolved]
  - Spermatozoa abnormal [Recovered/Resolved]
  - Dependence [Not Recovered/Not Resolved]
  - Gingival bleeding [Recovered/Resolved]
